FAERS Safety Report 7878644-4 (Version None)
Quarter: 2011Q4

REPORT INFORMATION
  Report Type: 
  Country: None (occurrence: None)
  Receive Date: 20111101
  Receipt Date: 20111027
  Transmission Date: 20120403
  Serious: Yes (Hospitalization, Other)
  Sender: FDA-Public Use
  Company Number: US-AMGEN-USASP2011016095

PATIENT
  Age: 90 Year
  Sex: Female

DRUGS (1)
  1. NPLATE [Suspect]
     Indication: IDIOPATHIC THROMBOCYTOPENIC PURPURA
     Dosage: 1 MUG/KG, UNK
     Dates: start: 20100422, end: 20110916

REACTIONS (4)
  - TIBIA FRACTURE [None]
  - THERAPEUTIC RESPONSE DECREASED [None]
  - ASTHENIA [None]
  - HIP ARTHROPLASTY [None]
